FAERS Safety Report 9685187 (Version 4)
Quarter: 2014Q1

REPORT INFORMATION
  Report Type: Spontaneous
  Country: EE (occurrence: EE)
  Receive Date: 20131113
  Receipt Date: 20140210
  Transmission Date: 20141002
  Serious: Yes (Hospitalization, Other)
  Sender: FDA-Public Use
  Company Number: EE-ROCHE-1301544

PATIENT
  Age: 62 Year
  Sex: Male
  Weight: 68 kg

DRUGS (6)
  1. PEGASYS [Suspect]
     Indication: CHRONIC HEPATITIS C
     Route: 058
     Dates: start: 20130830, end: 20130919
  2. PEGASYS [Suspect]
     Route: 058
     Dates: start: 20130920, end: 20131017
  3. PEGASYS [Suspect]
     Route: 058
     Dates: start: 20131018, end: 20131108
  4. COPEGUS [Suspect]
     Indication: CHRONIC HEPATITIS C
     Route: 048
     Dates: start: 20130830, end: 20130926
  5. COPEGUS [Suspect]
     Route: 048
     Dates: start: 20130927, end: 20131017
  6. COPEGUS [Suspect]
     Route: 048
     Dates: start: 20131018, end: 20131108

REACTIONS (5)
  - Ascites [Recovering/Resolving]
  - Oedema peripheral [Recovering/Resolving]
  - Blood albumin decreased [Recovered/Resolved]
  - Blood alkaline phosphatase increased [Recovered/Resolved]
  - Hepatic cirrhosis [Recovered/Resolved]
